FAERS Safety Report 10330697 (Version 1)
Quarter: 2014Q3

REPORT INFORMATION
  Report Type: Report from Study
  Country: BR (occurrence: BR)
  Receive Date: 20140722
  Receipt Date: 20140722
  Transmission Date: 20150326
  Serious: Yes (Other)
  Sender: FDA-Public Use
  Company Number: PHHY2014BR089171

PATIENT
  Sex: Female
  Weight: 61 kg

DRUGS (4)
  1. PURAN [Concomitant]
     Active Substance: LEVOTHYROXINE SODIUM
     Indication: HORMONE THERAPY
     Dosage: 1 DF, DAILY
     Dates: start: 1995
  2. PREMARIN [Concomitant]
     Active Substance: ESTROGENS, CONJUGATED
     Indication: THYROID DISORDER
     Dosage: 1 DF, DAILY
     Dates: start: 1995
  3. RECOTENS [Concomitant]
     Indication: DEPRESSION
     Dosage: 1.5 DF, DAILY
  4. ACLASTA [Suspect]
     Active Substance: ZOLEDRONIC ACID
     Indication: OSTEOPENIA
     Dosage: 1 DF, EVERY YEAR
     Route: 042
     Dates: start: 2012

REACTIONS (1)
  - Generalised erythema [Recovering/Resolving]

NARRATIVE: CASE EVENT DATE: 2012
